FAERS Safety Report 9465776 (Version 1)
Quarter: 2013Q3

REPORT INFORMATION
  Report Type: Spontaneous
  Country: US (occurrence: US)
  Receive Date: 20130820
  Receipt Date: 20130820
  Transmission Date: 20140515
  Serious: No
  Sender: FDA-Public Use
  Company Number: US-MYLANLABS-2012S1025824

PATIENT
  Age: 70 Year
  Sex: Female
  Weight: 68.04 kg

DRUGS (4)
  1. LIOTHYRONINE SODIUM TABLETS USP [Suspect]
     Indication: HYPOTHYROIDISM
     Route: 048
     Dates: start: 201211, end: 20121210
  2. FUROSEMIDE [Concomitant]
     Indication: FLUID RETENTION
  3. ZOLPIDEM [Concomitant]
     Indication: INSOMNIA
  4. ALPRAZOLAM [Concomitant]
     Indication: INSOMNIA

REACTIONS (3)
  - Throat tightness [Recovered/Resolved]
  - Anxiety [Recovered/Resolved]
  - Fatigue [Recovered/Resolved]
